FAERS Safety Report 15296824 (Version 1)
Quarter: 2018Q3

REPORT INFORMATION
  Report Type: Spontaneous
  Country: US (occurrence: US)
  Receive Date: 20180820
  Receipt Date: 20180820
  Transmission Date: 20181010
  Serious: Yes (Other)
  Sender: FDA-Public Use
  Company Number: US-AMGEN-USASP2018113860

PATIENT
  Sex: Female

DRUGS (4)
  1. HUMIRA [Suspect]
     Active Substance: ADALIMUMAB
     Dosage: UNK, 1 IN 10 D
     Route: 058
     Dates: start: 201806
  2. HUMIRA [Suspect]
     Active Substance: ADALIMUMAB
     Indication: RHEUMATOID ARTHRITIS
     Dosage: UNK
     Route: 058
  3. ENBREL [Suspect]
     Active Substance: ETANERCEPT
     Indication: PRODUCT USED FOR UNKNOWN INDICATION
     Dosage: UNK
     Route: 065
  4. HUMIRA [Suspect]
     Active Substance: ADALIMUMAB
     Dosage: UNK, Q2WK (1 IN 2 WK)
     Route: 058
     Dates: end: 2018

REACTIONS (11)
  - Peripheral swelling [Recovered/Resolved]
  - Cataract [Recovering/Resolving]
  - Drug ineffective [Unknown]
  - Pollakiuria [Unknown]
  - Pain [Unknown]
  - Drug hypersensitivity [Unknown]
  - Sensitivity to weather change [Unknown]
  - Temperature intolerance [Unknown]
  - Urinary tract infection [Unknown]
  - Injection site pain [Unknown]
  - Urticaria [Unknown]

NARRATIVE: CASE EVENT DATE: 2018
